FAERS Safety Report 4377797-2 (Version None)
Quarter: 2004Q2

REPORT INFORMATION
  Report Type: 
  Country: None (occurrence: None)
  Receive Date: 20040614
  Receipt Date: 20040614
  Transmission Date: 20050107
  Serious: Yes (Hospitalization, Other)
  Sender: FDA-Public Use
  Company Number: None

PATIENT
  Age: 72 Year
  Sex: Female

DRUGS (5)
  1. VIOXX [Suspect]
     Indication: ARTHRALGIA
     Dosage: 25 MG PO DAILY SEVERAL YEARS
     Route: 048
  2. VIOXX [Suspect]
     Indication: PAIN
     Dosage: 25 MG PO DAILY SEVERAL YEARS
     Route: 048
  3. ACIPHEX [Concomitant]
  4. ACTONEL [Concomitant]
  5. DITOPAN XL [Concomitant]

REACTIONS (5)
  - DYSGEUSIA [None]
  - FATIGUE [None]
  - MALAISE [None]
  - METABOLIC ACIDOSIS [None]
  - RENAL FAILURE ACUTE [None]
